FAERS Safety Report 6665861-4 (Version None)
Quarter: 2010Q2

REPORT INFORMATION
  Report Type: 
  Country: None (occurrence: None)
  Receive Date: 20100402
  Receipt Date: 20100322
  Transmission Date: 20101027
  Serious: Yes (Hospitalization)
  Sender: FDA-Public Use
  Company Number: GB-PFIZER INC-2010036122

PATIENT
  Age: 50 Year
  Sex: Male

DRUGS (3)
  1. HYDROCORTISONE SODIUM SUCCINATE [Suspect]
     Indication: PROPHYLAXIS
     Dosage: UNK MG, UNK
     Route: 040
     Dates: start: 20100225
  2. CHLORPHENAMINE [Suspect]
     Indication: PROPHYLAXIS
     Dosage: 10 MG, UNK
     Route: 040
     Dates: start: 20100225
  3. INFLIXIMAB [Concomitant]
     Indication: CROHN'S DISEASE

REACTIONS (2)
  - FATIGUE [None]
  - SOMNOLENCE [None]
